FAERS Safety Report 26102099 (Version 1)
Quarter: 2025Q4

REPORT INFORMATION
  Report Type: Spontaneous
  Country: EU (occurrence: EU)
  Receive Date: 20251128
  Receipt Date: 20251128
  Transmission Date: 20260118
  Serious: Yes (Other)
  Sender: TEVA
  Company Number: EU-TEVA-VS-3396142

PATIENT
  Sex: Male

DRUGS (2)
  1. COLCHICINE [Suspect]
     Active Substance: COLCHICINE
     Indication: Angina pectoris
     Dosage: 3 TABLETS DAILY FOR 3.5 WEEKS AND 10.5 MG FOR 3.5 WEEKS
     Route: 065
  2. IBUPROFEN [Suspect]
     Active Substance: IBUPROFEN
     Indication: Product used for unknown indication
     Route: 065

REACTIONS (16)
  - Gastric ulcer [Not Recovered/Not Resolved]
  - COVID-19 [Unknown]
  - Intestinal villi atrophy [Recovered/Resolved]
  - Feeling cold [Recovered/Resolved]
  - Vision blurred [Unknown]
  - Dry eye [Recovering/Resolving]
  - Renal function test abnormal [Not Recovered/Not Resolved]
  - Confusional state [Recovering/Resolving]
  - Faecal calprotectin increased [Unknown]
  - Gait disturbance [Recovered/Resolved]
  - Dry skin [Recovered/Resolved]
  - Peripheral swelling [Recovered/Resolved]
  - Prescribed overdose [Unknown]
  - Product use issue [Unknown]
  - Feeling hot [Recovered/Resolved]
  - Weight decreased [Recovered/Resolved]
